FAERS Safety Report 15219583 (Version 1)
Quarter: 2018Q3

REPORT INFORMATION
  Report Type: Report from Study
  Country: IT (occurrence: IT)
  Receive Date: 20180731
  Receipt Date: 20180731
  Transmission Date: 20181010
  Serious: Yes (Other)
  Sender: FDA-Public Use
  Company Number: IT-TEVA-2018-IT-933825

PATIENT
  Age: 56 Year
  Sex: Male

DRUGS (2)
  1. EZETIMIBE. [Suspect]
     Active Substance: EZETIMIBE
     Route: 065
  2. ATORVASTATIN [Interacting]
     Active Substance: ATORVASTATIN
     Route: 065

REACTIONS (3)
  - Myasthenia gravis [Recovering/Resolving]
  - Drug interaction [Recovering/Resolving]
  - Blood creatine phosphokinase increased [Recovering/Resolving]
